FAERS Safety Report 14971735 (Version 1)
Quarter: 2018Q2

REPORT INFORMATION
  Report Type: Spontaneous
  Country: FR (occurrence: FR)
  Receive Date: 20180604
  Receipt Date: 20180604
  Transmission Date: 20180711
  Serious: Yes (Hospitalization)
  Sender: FDA-Public Use
  Company Number: FR-TEVA-2018-FR-901171

PATIENT
  Age: 71 Year
  Sex: Male

DRUGS (5)
  1. LEXOMIL 12 MG, COMPRIM? [Concomitant]
     Active Substance: BROMAZEPAM
     Dosage: .5 DOSAGE FORMS DAILY;
     Route: 048
  2. PAROXETINE ARROW 20 MG, COMPRIM? PELLICUL? S?CABLE [Concomitant]
     Active Substance: PAROXETINE
     Dosage: 1 DOSAGE FORMS DAILY;
     Route: 048
  3. MIRTAZAPINE EG 15 MG, COMPRIM? PELLICUL? [Concomitant]
     Dosage: 1 DOSAGE FORMS DAILY;
     Route: 048
  4. TERCIAN 40 MG/ML, SOLUTION BUVABLE EN GOUTTES [Suspect]
     Active Substance: CYAMEMAZINE
     Indication: ANXIETY
     Dosage: 60 GTT DAILY;
     Route: 048
     Dates: start: 20170317, end: 20171215
  5. OLANZAPINE. [Suspect]
     Active Substance: OLANZAPINE
     Indication: ANXIETY
     Dosage: 10 MILLIGRAM DAILY;
     Route: 048
     Dates: start: 20170801, end: 20171215

REACTIONS (1)
  - Phlebitis [Recovering/Resolving]

NARRATIVE: CASE EVENT DATE: 20171025
